FAERS Safety Report 12439451 (Version 1)
Quarter: 2016Q2

REPORT INFORMATION
  Report Type: Spontaneous
  Country: US (occurrence: US)
  Receive Date: 20160606
  Receipt Date: 20160606
  Transmission Date: 20160815
  Serious: Yes (Death, Other)
  Sender: FDA-Public Use
  Company Number: US-PFIZER INC-2016284144

PATIENT
  Age: 42 Year
  Sex: Female

DRUGS (1)
  1. STREPTOMYCIN [Suspect]
     Active Substance: STREPTOMYCIN\STREPTOMYCIN SULFATE
     Indication: TYPHOID FEVER
     Dosage: 4 G, DAILY

REACTIONS (1)
  - Nephrotic syndrome [Fatal]
